FAERS Safety Report 19640981 (Version 4)
Quarter: 2021Q3

REPORT INFORMATION
  Report Type: Report from Study
  Country: None (occurrence: PT)
  Receive Date: 20210730
  Receipt Date: 20210824
  Transmission Date: 20211014
  Serious: Yes (Other)
  Sender: FDA-Public Use
  Company Number: PT-ABBVIE-21K-130-4010925-00

PATIENT
  Age: 40 Year
  Sex: Female

DRUGS (3)
  1. RELMUS [Concomitant]
     Active Substance: THIOCOLCHICOSIDE
     Indication: ANKYLOSING SPONDYLITIS
     Route: 048
  2. HUMIRA [Suspect]
     Active Substance: ADALIMUMAB
     Indication: ANKYLOSING SPONDYLITIS
     Route: 058
     Dates: start: 20210617
  3. DOL?U?RON FORTE [Concomitant]
     Indication: ANKYLOSING SPONDYLITIS
     Route: 048

REACTIONS (4)
  - Eye haemorrhage [Recovered/Resolved]
  - Eye haemorrhage [Recovered/Resolved]
  - Eye pain [Recovered/Resolved]
  - Eye pain [Recovered/Resolved]

NARRATIVE: CASE EVENT DATE: 202107
